FAERS Safety Report 23923003 (Version 3)
Quarter: 2025Q3

REPORT INFORMATION
  Report Type: Spontaneous
  Country: US (occurrence: US)
  Receive Date: 20240531
  Receipt Date: 20250911
  Transmission Date: 20251020
  Serious: No
  Sender: NOVARTIS
  Company Number: US-002147023-NVSC2024US114223

PATIENT

DRUGS (3)
  1. CYCLOSPORINE [Suspect]
     Active Substance: CYCLOSPORINE
     Indication: Product used for unknown indication
     Route: 065
  2. PREDNISOLONE [Suspect]
     Active Substance: PREDNISOLONE
     Indication: Product used for unknown indication
     Route: 065
  3. DUPILUMAB [Suspect]
     Active Substance: DUPILUMAB
     Indication: Product used for unknown indication
     Route: 065

REACTIONS (9)
  - Dry skin [Unknown]
  - Pruritus [Unknown]
  - Eczema [Unknown]
  - Nightmare [Unknown]
  - Rhinorrhoea [Unknown]
  - Illness [Unknown]
  - Pyrexia [Unknown]
  - Fatigue [Unknown]
  - Visual impairment [Unknown]
